FAERS Safety Report 4298474-2 (Version None)
Quarter: 2004Q1

REPORT INFORMATION
  Report Type: 
  Country: None (occurrence: None)
  Receive Date: 20040218
  Receipt Date: 20030926
  Transmission Date: 20041129
  Serious: Yes (Other)
  Sender: FDA-Public Use
  Company Number: US-BRISTOL-MYERS SQUIBB COMPANY-12400214

PATIENT
  Age: 42 Year
  Sex: Female

DRUGS (17)
  1. STADOL [Suspect]
     Indication: HEADACHE
     Route: 030
  2. STADOL [Suspect]
     Indication: BACK PAIN
     Route: 030
  3. STADOL [Suspect]
  4. PHENERGAN [Concomitant]
  5. TYLENOL W/ CODEINE NO. 3 [Concomitant]
  6. TORADOL [Concomitant]
  7. XENICAL [Concomitant]
  8. FLEXERIL [Concomitant]
  9. FIORINAL #3 [Concomitant]
  10. SOMA [Concomitant]
  11. DARVOCET [Concomitant]
  12. HYDROCODONE [Concomitant]
  13. TRAZODONE HCL [Concomitant]
  14. LORTAB [Concomitant]
  15. PROZAC [Concomitant]
  16. XANAX [Concomitant]
  17. VICODIN [Concomitant]

REACTIONS (1)
  - DEPENDENCE [None]
